FAERS Safety Report 11377130 (Version 1)
Quarter: 2015Q3

REPORT INFORMATION
  Report Type: Spontaneous
  Country: US (occurrence: US)
  Receive Date: 20150813
  Receipt Date: 20150813
  Transmission Date: 20151125
  Serious: No
  Sender: FDA-Public Use
  Company Number: US-GALDERMA-US15002115

PATIENT
  Sex: Male

DRUGS (9)
  1. SYSTANE LUBRICANT EYE DROPS [Concomitant]
     Indication: DRY EYE
     Route: 031
  2. METROGEL [Suspect]
     Active Substance: METRONIDAZOLE
     Indication: ROSACEA
     Dosage: 1%
     Route: 061
  3. SARNA ANTI-ITCH LOTION [Concomitant]
     Route: 061
  4. GARNIERMOISTURE RESCUE [Concomitant]
     Indication: DRY SKIN PROPHYLAXIS
     Route: 061
  5. FISH OIL [Concomitant]
     Active Substance: FISH OIL
     Route: 048
  6. ASPIRIN. [Concomitant]
     Active Substance: ASPIRIN
     Dosage: 81 MG
     Route: 048
  7. VITAMIN B COMPLEX [Concomitant]
     Active Substance: CYANOCOBALAMIN\DEXPANTHENOL\NIACINAMIDE\PYRIDOXINE HYDROCHLORIDE\RIBOFLAVIN 5^-PHOSPHATE SODIUM\THIAMINE HYDROCHLORIDE\VITAMIN B COMPLEX
     Route: 048
  8. OMEGA 3 [Concomitant]
     Active Substance: OMEGA-3 FATTY ACIDS
     Route: 048
  9. OCUVITE [Concomitant]
     Active Substance: VITAMINS
     Route: 031

REACTIONS (3)
  - Dry skin [Recovered/Resolved]
  - Pruritus [Recovered/Resolved]
  - Drug ineffective [Recovered/Resolved]
